FAERS Safety Report 5977476-1 (Version None)
Quarter: 2008Q4

REPORT INFORMATION
  Report Type: 
  Country: None (occurrence: None)
  Receive Date: 20081125
  Receipt Date: 20081113
  Transmission Date: 20090506
  Serious: Yes (Hospitalization)
  Sender: FDA-Public Use
  Company Number: 1-16720928

PATIENT
  Age: 41 Year
  Sex: Female

DRUGS (5)
  1. WARFARIN SODIUM [Suspect]
     Indication: DEEP VEIN THROMBOSIS
     Dosage: 5 MG, DAILY, ORAL
     Route: 048
     Dates: start: 20080701, end: 20080801
  2. WARFARIN SODIUM [Suspect]
     Indication: DEEP VEIN THROMBOSIS
     Dosage: 5 MG, DAILY, ORAL
     Route: 048
     Dates: start: 20080801
  3. TOPROL XL METOPRLOL SUCCINATE) [Concomitant]
  4. DIOVAN [Concomitant]
  5. CALCIUM WITH VITAMIN D [Concomitant]

REACTIONS (5)
  - ACCIDENTAL OVERDOSE [None]
  - HAEMORRHOIDS [None]
  - INCORRECT DOSE ADMINISTERED [None]
  - INTERNATIONAL NORMALISED RATIO ABNORMAL [None]
  - PROTHROMBIN TIME PROLONGED [None]
